FAERS Safety Report 14301322 (Version 1)
Quarter: 2017Q4

REPORT INFORMATION
  Report Type: Spontaneous
  Country: US (occurrence: US)
  Receive Date: 20171218
  Receipt Date: 20171218
  Transmission Date: 20180321
  Serious: Yes (Death)
  Sender: FDA-Public Use
  Company Number: None

PATIENT
  Age: 88 Year
  Sex: Male

DRUGS (7)
  1. METOPROLOL TARTRATE. [Concomitant]
     Active Substance: METOPROLOL TARTRATE
  2. COUMADIN [Concomitant]
     Active Substance: WARFARIN SODIUM
  3. PRANDIN [Concomitant]
     Active Substance: REPAGLINIDE
  4. LUPRON DEPOT [Suspect]
     Active Substance: LEUPROLIDE ACETATE
     Indication: PROSTATE CANCER
     Dosage: ?          OTHER FREQUENCY:QM;?
     Route: 030
     Dates: start: 20130809
  5. LANTUS [Concomitant]
     Active Substance: INSULIN GLARGINE
  6. MEGACE ES [Concomitant]
     Active Substance: MEGESTROL ACETATE
  7. REMERON [Concomitant]
     Active Substance: MIRTAZAPINE

REACTIONS (1)
  - Death [None]

NARRATIVE: CASE EVENT DATE: 20171201
